FAERS Safety Report 4265895-3 (Version None)
Quarter: 2004Q1

REPORT INFORMATION
  Report Type: 
  Country: None (occurrence: None)
  Receive Date: 20040106
  Receipt Date: 20031222
  Transmission Date: 20041129
  Serious: Yes (Hospitalization, Other)
  Sender: FDA-Public Use
  Company Number: 2003116811

PATIENT
  Age: 79 Year
  Sex: Male

DRUGS (11)
  1. TIKOSYN [Suspect]
     Indication: VENTRICULAR TACHYCARDIA
     Dosage: 250 MCG (BID), ORAL
     Route: 048
     Dates: start: 20030101
  2. ACETYLSALICYLIC ACID SRT [Concomitant]
  3. QUINAPRIL HCL [Concomitant]
  4. METOPROLOL SUCCINATE [Concomitant]
  5. LANSOPRAZOLE [Concomitant]
  6. ISOSORBIDE MONONITRATE [Concomitant]
  7. WARFARIN SODIUM [Concomitant]
  8. SIMVASTATIN [Concomitant]
  9. FINASTERIDE [Concomitant]
  10. FUROSEMIDE [Concomitant]
  11. PREDNISONE [Concomitant]

REACTIONS (4)
  - BLOOD UREA INCREASED [None]
  - ELECTROCARDIOGRAM ST-T CHANGE [None]
  - VENTRICULAR EXTRASYSTOLES [None]
  - VENTRICULAR TACHYCARDIA [None]
